FAERS Safety Report 18450750 (Version 8)
Quarter: 2022Q4

REPORT INFORMATION
  Report Type: Report from Study
  Country: JP (occurrence: JP)
  Receive Date: 20201102
  Receipt Date: 20221117
  Transmission Date: 20230113
  Serious: Yes (Life-Threatening, Hospitalization, Other)
  Sender: FDA-Public Use
  Company Number: JP-MSD-M2020-22950

PATIENT
  Age: 47 Year
  Sex: Male
  Weight: 85 kg

DRUGS (3)
  1. PEMBROLIZUMAB [Suspect]
     Active Substance: PEMBROLIZUMAB
     Indication: Papillary renal cell carcinoma
     Dosage: 200 MILLIGRAM, Q3W
     Route: 041
     Dates: start: 20200923, end: 20200923
  2. AXITINIB [Suspect]
     Active Substance: AXITINIB
     Indication: Papillary renal cell carcinoma
     Dosage: 5 MILLIGRAM, BID
     Route: 065
     Dates: start: 20200916, end: 20200927
  3. PREDONINE [Concomitant]
     Active Substance: PREDNISOLONE
     Dosage: 25 MILLIGRAM
     Route: 048
     Dates: start: 202006, end: 20200917

REACTIONS (9)
  - Cytokine release syndrome [Recovered/Resolved]
  - Pulmonary oedema [Recovering/Resolving]
  - Pneumonia aspiration [Unknown]
  - Immune-mediated hepatic disorder [Recovered/Resolved]
  - Immune-mediated myocarditis [Recovered/Resolved]
  - Disorientation [Recovering/Resolving]
  - Hepatomegaly [Unknown]
  - Kidney enlargement [Unknown]
  - Anaemia [Unknown]

NARRATIVE: CASE EVENT DATE: 20200927
